FAERS Safety Report 6291679-0 (Version None)
Quarter: 2009Q3

REPORT INFORMATION
  Report Type: 
  Country: None (occurrence: None)
  Receive Date: 20090730
  Receipt Date: 20090730
  Transmission Date: 20100115
  Serious: No
  Sender: FDA-Public Use
  Company Number: None

PATIENT
  Sex: Female
  Weight: 65.7716 kg

DRUGS (4)
  1. VANCOMYCIN [Suspect]
     Indication: CENTRAL NERVOUS SYSTEM ABSCESS
     Dosage: 1000 MG Q8H IV
     Route: 042
     Dates: start: 20090704, end: 20090727
  2. VANCOMYCIN [Suspect]
     Indication: SINUSITIS
     Dosage: 1000 MG Q8H IV
     Route: 042
     Dates: start: 20090704, end: 20090727
  3. MEROPENEM [Suspect]
     Dosage: 2000 MG Q8H IV
     Route: 042
     Dates: start: 20090704, end: 20090727
  4. KEPPRA [Concomitant]

REACTIONS (1)
  - DRUG RASH WITH EOSINOPHILIA AND SYSTEMIC SYMPTOMS [None]
